FAERS Safety Report 13560127 (Version 1)
Quarter: 2017Q2

REPORT INFORMATION
  Report Type: Spontaneous
  Country: US (occurrence: US)
  Receive Date: 20170518
  Receipt Date: 20170518
  Transmission Date: 20170830
  Serious: No
  Sender: FDA-Public Use
  Company Number: US-PFIZER INC-2017212123

PATIENT
  Age: 9 Year
  Sex: Male
  Weight: 33 kg

DRUGS (4)
  1. PERMETHRIN. [Suspect]
     Active Substance: PERMETHRIN
     Indication: ARTHROPOD BITE
  2. EUCRISA [Suspect]
     Active Substance: CRISABOROLE
     Indication: ECZEMA
     Dosage: 2% USE TOPICALLY TWICE A DAY
     Route: 061
     Dates: start: 20170511
  3. EUCRISA [Suspect]
     Active Substance: CRISABOROLE
     Indication: ARTHROPOD BITE
  4. PERMETHRIN. [Suspect]
     Active Substance: PERMETHRIN
     Indication: ECZEMA
     Dosage: 5% CREAM WW TOPICALLY ONCE A WEEK FOR 2 WEEKS
     Route: 061
     Dates: start: 20170510

REACTIONS (4)
  - Pain [Recovered/Resolved]
  - Burning sensation [Recovered/Resolved]
  - Feeling abnormal [Recovered/Resolved]
  - Erythema [Recovering/Resolving]

NARRATIVE: CASE EVENT DATE: 20170510
